FAERS Safety Report 6857538-7 (Version None)
Quarter: 2010Q3

REPORT INFORMATION
  Report Type: 
  Country: None (occurrence: None)
  Receive Date: 20100719
  Receipt Date: 20080128
  Transmission Date: 20110219
  Serious: No
  Sender: FDA-Public Use
  Company Number: US-PFIZER INC-2008008342

PATIENT
  Sex: Female
  Weight: 100 kg

DRUGS (8)
  1. CHANTIX [Suspect]
     Indication: SMOKING CESSATION THERAPY
     Dates: start: 20071201, end: 20080117
  2. ACTOS [Concomitant]
  3. METFORMIN [Concomitant]
  4. VYTORIN [Concomitant]
  5. SIMVASTATIN [Concomitant]
  6. DIOVANE [Concomitant]
  7. GLIMEPIRIDE [Concomitant]
  8. ATENOLOL [Concomitant]

REACTIONS (2)
  - ABNORMAL DREAMS [None]
  - NIGHTMARE [None]
